FAERS Safety Report 8499242-8 (Version None)
Quarter: 2012Q2

REPORT INFORMATION
  Report Type: 
  Country: None (occurrence: None)
  Receive Date: 20120405
  Receipt Date: 20110301
  Transmission Date: 20120825
  Serious: Yes (Other)
  Sender: FDA-Public Use
  Company Number: PHHY2010US89125

PATIENT
  Age: 78 Year
  Sex: Female

DRUGS (4)
  1. RECLAST [Suspect]
     Dosage: 5 MG PER YEAR, INTRAVENOUS
     Route: 042
     Dates: start: 20101203
  2. FENTANYL [Concomitant]
  3. ACETAMINOPHEN [Concomitant]
  4. VITAMINS (NO INGREDIENTS/SUBSTANCES) [Concomitant]

REACTIONS (13)
  - PAIN IN EXTREMITY [None]
  - MYALGIA [None]
  - PAIN IN JAW [None]
  - GAIT DISTURBANCE [None]
  - FLUID RETENTION [None]
  - ARTHRALGIA [None]
  - JOINT STIFFNESS [None]
  - ARTHRITIS [None]
  - JOINT SWELLING [None]
  - OEDEMA PERIPHERAL [None]
  - NECK PAIN [None]
  - SOMNOLENCE [None]
  - MASTICATION DISORDER [None]
